FAERS Safety Report 21623468 (Version 2)
Quarter: 2022Q4

REPORT INFORMATION
  Report Type: Other
  Country: DE (occurrence: None)
  Receive Date: 20221121
  Receipt Date: 20221207
  Transmission Date: 20230113
  Serious: No
  Sender: FDA-Public Use
  Company Number: DE-ROCHE-3222092

PATIENT
  Age: 48 Year
  Sex: Female

DRUGS (2)
  1. OCREVUS [Suspect]
     Active Substance: OCRELIZUMAB
     Indication: Relapsing-remitting multiple sclerosis
     Route: 042
     Dates: start: 20221019
  2. ZOVIRAX [Concomitant]
     Active Substance: ACYCLOVIR

REACTIONS (3)
  - Pain in extremity [Not Recovered/Not Resolved]
  - Oral herpes [Not Recovered/Not Resolved]
  - Influenza like illness [Not Recovered/Not Resolved]

NARRATIVE: CASE EVENT DATE: 20221026
